FAERS Safety Report 11808355 (Version 1)
Quarter: 2015Q4

REPORT INFORMATION
  Report Type: Spontaneous
  Country: FR (occurrence: FR)
  Receive Date: 20151207
  Receipt Date: 20151207
  Transmission Date: 20160305
  Serious: Yes (Life-Threatening, Other)
  Sender: FDA-Public Use
  Company Number: FR-MALLINCKRODT-T201505494

PATIENT
  Age: 31 Year
  Sex: Male

DRUGS (5)
  1. MORPHINE SULFATE. [Suspect]
     Active Substance: MORPHINE SULFATE
     Indication: PLASTIC SURGERY TO THE FACE
     Dosage: UNK
     Route: 042
     Dates: start: 20151104
  2. ACUPAN [Suspect]
     Active Substance: NEFOPAM HYDROCHLORIDE
     Indication: PLASTIC SURGERY TO THE FACE
     Dosage: 120 MG, QD
     Route: 042
     Dates: start: 20151104
  3. PROFENID [Suspect]
     Active Substance: KETOPROFEN
     Indication: PLASTIC SURGERY TO THE FACE
     Dosage: 100 MG, TID
     Route: 042
     Dates: start: 20151104
  4. SEVOFLURANE BAXTER [Suspect]
     Active Substance: SEVOFLURANE
     Indication: PLASTIC SURGERY TO THE FACE
     Dosage: UNK
     Route: 055
     Dates: start: 20151104
  5. OFIRMEV [Suspect]
     Active Substance: ACETAMINOPHEN
     Indication: PLASTIC SURGERY TO THE FACE
     Dosage: 1 G, QD
     Route: 042
     Dates: start: 20151104

REACTIONS (4)
  - Acute kidney injury [Unknown]
  - Anuria [Unknown]
  - Electrolyte imbalance [Unknown]
  - Rhabdomyolysis [Not Recovered/Not Resolved]

NARRATIVE: CASE EVENT DATE: 20151104
